FAERS Safety Report 9913203 (Version 1)
Quarter: 2014Q1

REPORT INFORMATION
  Report Type: Spontaneous
  Country: GB (occurrence: None)
  Receive Date: 20140214
  Receipt Date: 20140214
  Transmission Date: 20141002
  Serious: Yes (Hospitalization, Other)
  Sender: FDA-Public Use
  Company Number: CL-552-2014

PATIENT
  Age: 54 Year
  Sex: Male

DRUGS (1)
  1. METRONIDAZOLE [Suspect]
     Indication: CLOSTRIDIUM DIFFICILE COLITIS

REACTIONS (5)
  - Hepatotoxicity [None]
  - International normalised ratio increased [None]
  - Hepatic failure [None]
  - Hepatitis [None]
  - Drug-induced liver injury [None]
